FAERS Safety Report 7079859-8 (Version None)
Quarter: 2010Q4

REPORT INFORMATION
  Report Type: 
  Country: None (occurrence: None)
  Receive Date: 20101102
  Receipt Date: 20101024
  Transmission Date: 20110411
  Serious: Yes (Other)
  Sender: FDA-Public Use
  Company Number: TN-ABBOTT-10P-160-0681404-00

PATIENT
  Age: 42 Year
  Sex: Female

DRUGS (3)
  1. HUMIRA [Suspect]
     Indication: RHEUMATOID ARTHRITIS
     Route: 058
     Dates: start: 20101011, end: 20101011
  2. SALAZOPIRINE [Concomitant]
     Indication: RHEUMATOID ARTHRITIS
     Dosage: 2 G/DAY
     Route: 048
     Dates: start: 20100901
  3. SOLUPRED [Concomitant]
     Indication: RHEUMATOID ARTHRITIS
     Route: 048

REACTIONS (3)
  - DYSPHAGIA [None]
  - FACE OEDEMA [None]
  - RASH [None]
